FAERS Safety Report 21632853 (Version 1)
Quarter: 2022Q4

REPORT INFORMATION
  Report Type: Report from Study
  Country: US (occurrence: US)
  Receive Date: 20221123
  Receipt Date: 20221123
  Transmission Date: 20230113
  Serious: No
  Sender: FDA-Public Use
  Company Number: US-ABBVIE-22K-163-4473554-00

PATIENT
  Sex: Female

DRUGS (5)
  1. HUMIRA [Suspect]
     Active Substance: ADALIMUMAB
     Indication: Rheumatoid arthritis
     Dosage: CITRATE FREE?FORM STRENGTH: 40 MG
     Route: 058
  2. HUMIRA [Suspect]
     Active Substance: ADALIMUMAB
     Dosage: CITRATE FREE?FORM STRENGTH: 40 MG
     Route: 058
  3. Moderna [Concomitant]
     Indication: COVID-19 immunisation
     Dosage: 1 IN ONCE
     Route: 030
  4. FOLIC ACID [Concomitant]
     Active Substance: FOLIC ACID
     Indication: Product used for unknown indication
  5. METHOTREXATE [Concomitant]
     Active Substance: METHOTREXATE
     Indication: Product used for unknown indication

REACTIONS (18)
  - Constipation [Recovered/Resolved]
  - Pain in extremity [Unknown]
  - Rash papular [Unknown]
  - Neck pain [Unknown]
  - Acne [Unknown]
  - Diarrhoea [Unknown]
  - Feeling abnormal [Unknown]
  - Device issue [Unknown]
  - Pharyngitis [Unknown]
  - Blister [Unknown]
  - Musculoskeletal stiffness [Unknown]
  - Weight decreased [Unknown]
  - Muscle spasms [Unknown]
  - Tenderness [Unknown]
  - Pain [Unknown]
  - Peripheral swelling [Unknown]
  - Skin discolouration [Unknown]
  - Orthosis user [Unknown]
